FAERS Safety Report 6492452-0 (Version None)
Quarter: 2009Q4

REPORT INFORMATION
  Report Type: 
  Country: None (occurrence: None)
  Receive Date: 20091214
  Receipt Date: 20091202
  Transmission Date: 20100525
  Serious: No
  Sender: FDA-Public Use
  Company Number: BR-ROCHE-620919

PATIENT
  Sex: Male
  Weight: 2.8 kg

DRUGS (1)
  1. ROACUTAN [Suspect]
     Indication: ACNE
     Dosage: STRENGTH: 10 AND 20 MG
     Route: 064
     Dates: start: 20080201, end: 20081201

REACTIONS (2)
  - NO ADVERSE EVENT [None]
  - NORMAL NEWBORN [None]
